FAERS Safety Report 6299974-6 (Version None)
Quarter: 2009Q3

REPORT INFORMATION
  Report Type: 
  Country: None (occurrence: None)
  Receive Date: 20090803
  Receipt Date: 20090722
  Transmission Date: 20100115
  Serious: Yes (Hospitalization)
  Sender: FDA-Public Use
  Company Number: GXKR2009US08351

PATIENT
  Age: 58 Year
  Sex: Male
  Weight: 52 kg

DRUGS (13)
  1. LEVOFLOXACIN (NGX) (LEVOFLOXACIN) , 750MG [Suspect]
     Indication: PNEUMONIA
     Dosage: 750 MG, 2 DOSES WITHIN 65 HOURS, ORAL
     Route: 048
  2. GLIPIZIDE [Suspect]
     Dosage: 10 MG, QD (TWO DOSES), ORAL
     Route: 048
  3. GLIMEPIRIDE [Concomitant]
  4. ASPIRIN [Concomitant]
  5. LISINOPRIL [Concomitant]
  6. PANTOPRAZOLE SODIUM [Concomitant]
  7. METOPROLOL SUCCINATE [Concomitant]
  8. FUROSEMIDE [Concomitant]
  9. INSULIN (INSULIN) [Concomitant]
  10. PIPERACILLIN W/TAZOBACTAM (PIPERACILLIN, TAZOBACTAM) [Concomitant]
  11. SODIUM CHLORIDE INJECTION (SODIUM CHLORIDE), 0.9 % [Concomitant]
  12. THIAMINE (THIAMINE) [Concomitant]
  13. MAGNESIUM SULFATE [Concomitant]

REACTIONS (4)
  - BLOOD ALBUMIN DECREASED [None]
  - BLOOD GLUCOSE INCREASED [None]
  - DRUG INTERACTION [None]
  - HYPOGLYCAEMIA [None]
